FAERS Safety Report 5795739-X (Version None)
Quarter: 2008Q2

REPORT INFORMATION
  Report Type: 
  Country: None (occurrence: None)
  Receive Date: 20080630
  Receipt Date: 20080310
  Transmission Date: 20081010
  Serious: No
  Sender: FDA-Public Use
  Company Number: US-BOEHRINGER INGELHEIM GMBH, GERMANY-2007-BP-16622BP

PATIENT
  Sex: Male
  Weight: 73 kg

DRUGS (7)
  1. MIRAPEX [Suspect]
     Indication: PARKINSON'S DISEASE
     Dates: start: 19990101, end: 20061001
  2. AMANTADINE HCL [Concomitant]
     Indication: PARKINSON'S DISEASE
  3. ALPHAGAN [Concomitant]
     Indication: GLAUCOMA
  4. TRAVATAN [Concomitant]
     Indication: GLAUCOMA
  5. COSOPT [Concomitant]
     Indication: GLAUCOMA
  6. STALEVO 100 [Concomitant]
  7. SEROQUEL [Concomitant]

REACTIONS (6)
  - ANXIETY [None]
  - DEPRESSION [None]
  - EMOTIONAL DISTRESS [None]
  - FEAR [None]
  - PATHOLOGICAL GAMBLING [None]
  - STRESS [None]
